FAERS Safety Report 8877443 (Version 1)
Quarter: 2012Q4

REPORT INFORMATION
  Report Type: 
  Country: US (occurrence: US)
  Receive Date: 20121024
  Receipt Date: 20121024
  Transmission Date: 20130627
  Serious: No
  Sender: FDA-Public Use
  Company Number: US-PFIZER INC-2012265684

PATIENT
  Sex: Female

DRUGS (1)
  1. GEODON [Suspect]
     Indication: DEPRESSION
     Dosage: 40 mg, 1x/day
     Route: 048

REACTIONS (1)
  - Weight increased [Unknown]
